FAERS Safety Report 8145077-5 (Version None)
Quarter: 2012Q1

REPORT INFORMATION
  Report Type: 
  Country: None (occurrence: None)
  Receive Date: 20120103
  Receipt Date: 20111016
  Transmission Date: 20120608
  Serious: No
  Sender: FDA-Public Use
  Company Number: AE-2011-002360

PATIENT
  Sex: Female
  Weight: 98.8842 kg

DRUGS (7)
  1. PEGINTERFERON (PEGINTERFERON ALFA-2A) ) [Concomitant]
  2. SINGULAIR [Concomitant]
  3. RIBAVIRIN [Concomitant]
  4. METFORMIN HCL [Concomitant]
  5. MULTI-VITAMINS [Concomitant]
  6. ASPIRIN [Concomitant]
  7. INCIVEK [Suspect]
     Dosage: (3 IN 1 D), ORAL
     Route: 048
     Dates: start: 20111014

REACTIONS (1)
  - ANORECTAL DISCOMFORT [None]
